FAERS Safety Report 4886575-7 (Version None)
Quarter: 2006Q1

REPORT INFORMATION
  Report Type: 
  Country: None (occurrence: None)
  Receive Date: 20060118
  Receipt Date: 20051229
  Transmission Date: 20060701
  Serious: Yes (Other)
  Sender: FDA-Public Use
  Company Number: USA0510112193

PATIENT
  Age: 49 Year
  Sex: Female
  Weight: 68.9 kg

DRUGS (5)
  1. CYMBALTA [Suspect]
     Indication: DEPRESSION
     Dosage: 60 MG
     Dates: start: 20050209
  2. BACLOFEN [Concomitant]
  3. KLONOPIN [Concomitant]
  4. AVINZA [Concomitant]
  5. MORPHINE SULFATE [Concomitant]

REACTIONS (1)
  - HEPATITIS [None]
